FAERS Safety Report 5924230-2 (Version None)
Quarter: 2008Q4

REPORT INFORMATION
  Report Type: 
  Country: None (occurrence: None)
  Receive Date: 20081020
  Receipt Date: 20081009
  Transmission Date: 20090506
  Serious: Yes (Hospitalization)
  Sender: FDA-Public Use
  Company Number: US-ELI_LILLY_AND_COMPANY-US200809006586

PATIENT
  Sex: Female

DRUGS (4)
  1. EVISTA [Suspect]
     Indication: OSTEOARTHRITIS
     Dosage: UNK, UNKNOWN
     Route: 065
     Dates: start: 19890101
  2. SINGULAIR [Concomitant]
     Dosage: UNK, UNKNOWN
     Route: 065
  3. FLOVENT [Concomitant]
     Dosage: UNK, UNKNOWN
     Route: 065
  4. NASONEX [Concomitant]
     Dosage: UNK, UNKNOWN
     Route: 065

REACTIONS (11)
  - AMNESIA [None]
  - APHASIA [None]
  - CATARACT [None]
  - CEREBROVASCULAR ACCIDENT [None]
  - DEHYDRATION [None]
  - DISORIENTATION [None]
  - DYSPNOEA [None]
  - HIP FRACTURE [None]
  - INTRAOCULAR PRESSURE INCREASED [None]
  - LOSS OF CONSCIOUSNESS [None]
  - SPEECH DISORDER [None]
